FAERS Safety Report 8495130 (Version 3)
Quarter: 2013Q2

REPORT INFORMATION
  Report Type: Spontaneous
  Country: US (occurrence: None)
  Receive Date: 20120322
  Receipt Date: 20120621
  Transmission Date: 20140414
  Serious: Yes (Hospitalization)
  Sender: FDA-Public Use
  Company Number: UTC-014543

PATIENT
  Age: 43 Year
  Sex: Female
  Weight: 136.8 kg

DRUGS (4)
  1. TYVASO [Suspect]
     Indication: PULMONARY ARTERIAL HYPERTENSION
     Dosage: 216 MCG (54 MCG, 4 IN 1 D), INHALATION
     Route: 055
     Dates: start: 20110113
  2. COUMADIN [Concomitant]
  3. REVATIO [Concomitant]
  4. TRACLEER [Concomitant]

REACTIONS (1)
  - PNEUMONIA [None]
